FAERS Safety Report 22611240 (Version 1)
Quarter: 2023Q2

REPORT INFORMATION
  Report Type: Report from Study
  Country: BR (occurrence: BR)
  Receive Date: 20230616
  Receipt Date: 20230616
  Transmission Date: 20230722
  Serious: Yes (Hospitalization)
  Sender: FDA-Public Use
  Company Number: BR-JNJFOC-20230635907

PATIENT
  Age: 33 Year
  Sex: Female
  Weight: 67 kg

DRUGS (5)
  1. AMIVANTAMAB [Suspect]
     Active Substance: AMIVANTAMAB
     Indication: Non-small cell lung cancer
     Dosage: MOST RECENT DOSE ON 30-MAY-2023
     Route: 042
     Dates: start: 20230504
  2. LEVETIRACETAM [Concomitant]
     Active Substance: LEVETIRACETAM
     Indication: Visual field defect
     Route: 048
     Dates: start: 20210901
  3. DESVENLAFAXINE [Concomitant]
     Active Substance: DESVENLAFAXINE
     Indication: Anxiety
     Route: 048
     Dates: start: 20220801
  4. BUDESONIDE [Concomitant]
     Active Substance: BUDESONIDE
     Indication: Headache
     Route: 045
     Dates: start: 20230505
  5. DEXAMETHASONE [Concomitant]
     Active Substance: DEXAMETHASONE
     Indication: Prophylaxis
     Route: 048
     Dates: start: 20230506

REACTIONS (1)
  - Embolism [Recovering/Resolving]

NARRATIVE: CASE EVENT DATE: 20230613
